FAERS Safety Report 5716940-7 (Version None)
Quarter: 2008Q2

REPORT INFORMATION
  Report Type: 
  Country: None (occurrence: None)
  Receive Date: 20080424
  Receipt Date: 20080414
  Transmission Date: 20081010
  Serious: Yes (Other)
  Sender: FDA-Public Use
  Company Number: GB-ABBOTT-08P-167-0441742-00

PATIENT
  Sex: Male

DRUGS (16)
  1. HUMIRA [Suspect]
     Indication: RHEUMATOID ARTHRITIS
     Route: 058
     Dates: start: 20080204, end: 20080305
  2. ACETYLSALICYLIC ACID SRT [Concomitant]
     Indication: DRUG USE FOR UNKNOWN INDICATION
  3. OMEPRAZOLE [Concomitant]
     Indication: DRUG USE FOR UNKNOWN INDICATION
  4. LEFLUNOMIDE [Concomitant]
     Indication: DRUG USE FOR UNKNOWN INDICATION
     Dates: end: 20080225
  5. PREDNISOLONE E/C [Concomitant]
     Indication: DRUG USE FOR UNKNOWN INDICATION
  6. PREDNISOLONE E/C [Concomitant]
  7. SULFASALAZINE [Concomitant]
     Indication: DRUG USE FOR UNKNOWN INDICATION
  8. DICLOFENAC SODIUM E/C [Concomitant]
     Indication: DRUG USE FOR UNKNOWN INDICATION
  9. E45 [Concomitant]
     Indication: DRUG USE FOR UNKNOWN INDICATION
  10. FOLIC ACID [Concomitant]
     Indication: DRUG USE FOR UNKNOWN INDICATION
  11. LEKOVIT CA [Concomitant]
     Indication: DRUG USE FOR UNKNOWN INDICATION
  12. DIHYDROCODEINE [Concomitant]
     Indication: DRUG USE FOR UNKNOWN INDICATION
  13. QUININE BISULFATE [Concomitant]
     Indication: DRUG USE FOR UNKNOWN INDICATION
  14. LEFLUNOMIDE [Concomitant]
     Dates: end: 20080225
  15. METHOTREXATE [Concomitant]
     Indication: DRUG USE FOR UNKNOWN INDICATION
  16. PREDNISOLONE [Concomitant]
     Indication: DRUG USE FOR UNKNOWN INDICATION

REACTIONS (14)
  - AGEUSIA [None]
  - ASTHENIA [None]
  - DRY EYE [None]
  - DYSGEUSIA [None]
  - EYE PAIN [None]
  - EYE PRURITUS [None]
  - FATIGUE [None]
  - FREQUENT BOWEL MOVEMENTS [None]
  - HEADACHE [None]
  - LETHARGY [None]
  - MALAISE [None]
  - NAUSEA [None]
  - PARAESTHESIA [None]
  - SENSORY DISTURBANCE [None]
